FAERS Safety Report 24071637 (Version 1)
Quarter: 2024Q3

REPORT INFORMATION
  Report Type: Report from Study
  Country: AE (occurrence: AE)
  Receive Date: 20240710
  Receipt Date: 20240710
  Transmission Date: 20241017
  Serious: No
  Sender: ROCHE
  Company Number: AE-ROCHE-3156034

PATIENT
  Age: 2 Year
  Sex: Female

DRUGS (2)
  1. EVRYSDI [Suspect]
     Active Substance: RISDIPLAM
     Indication: Spinal muscular atrophy
     Route: 065
  2. EVRYSDI [Suspect]
     Active Substance: RISDIPLAM
     Route: 065
     Dates: start: 20220302

REACTIONS (3)
  - Weight increased [Unknown]
  - Viral infection [Unknown]
  - Product dose omission issue [Unknown]

NARRATIVE: CASE EVENT DATE: 20240606
